FAERS Safety Report 9911494 (Version 3)
Quarter: 2014Q1

REPORT INFORMATION
  Report Type: Spontaneous
  Country: GB (occurrence: GB)
  Receive Date: 20140219
  Receipt Date: 20140228
  Transmission Date: 20141002
  Serious: Yes (Death, Other)
  Sender: FDA-Public Use
  Company Number: PHFR2013GB005319

PATIENT
  Age: 76 Year
  Sex: Female

DRUGS (9)
  1. EXJADE [Suspect]
     Indication: MYELODYSPLASTIC SYNDROME
     Dosage: 1000 MG, QD
     Dates: start: 20111128
  2. EXJADE [Suspect]
     Dosage: 1500 MG, QD
     Dates: start: 201211, end: 20130409
  3. CALCICHEW D3 [Concomitant]
     Dosage: UNK UKN, TID
     Route: 048
  4. CARBIMAZOLE [Concomitant]
     Dosage: 5 MG, QD
     Route: 048
  5. OMEPRAZOLE [Concomitant]
     Dosage: 20 MG, QD
     Route: 048
  6. CETRIZINE [Concomitant]
     Dosage: 10 MG, QD
     Route: 048
  7. SOTALOL [Concomitant]
     Dosage: UNK UKN, UNK
     Route: 048
  8. CHLORPHENAMINE [Concomitant]
     Dosage: 4 MG, UNK
     Route: 048
  9. WARFARIN [Concomitant]

REACTIONS (9)
  - Necrotising fasciitis [Fatal]
  - Multi-organ failure [Fatal]
  - Renal failure [Fatal]
  - Pancytopenia [Not Recovered/Not Resolved]
  - Renal impairment [Not Recovered/Not Resolved]
  - Leukopenia [Not Recovered/Not Resolved]
  - Thrombocytopenia [Not Recovered/Not Resolved]
  - Neutropenia [Not Recovered/Not Resolved]
  - Anaemia [Not Recovered/Not Resolved]
